FAERS Safety Report 8386107-5 (Version None)
Quarter: 2012Q2

REPORT INFORMATION
  Report Type: 
  Country: None (occurrence: None)
  Receive Date: 20120525
  Receipt Date: 20120521
  Transmission Date: 20120825
  Serious: Yes (Hospitalization)
  Sender: FDA-Public Use
  Company Number: US-BAYER-2012-000038

PATIENT
  Age: 19 Year
  Sex: Female
  Weight: 82.086 kg

DRUGS (28)
  1. ALBUTEROL [Concomitant]
     Indication: ASTHMA
     Dosage: UNK
     Dates: start: 20010101
  2. MELATONIN [Concomitant]
     Indication: SLEEP DISORDER
     Dosage: UNK
     Dates: start: 20030101
  3. VITAMIN D [Concomitant]
     Indication: VITAMIN SUPPLEMENTATION
     Dosage: UNK
     Dates: start: 20030101
  4. BENADRYL [Concomitant]
     Indication: SLEEP DISORDER
     Dosage: UNK
     Dates: start: 20080101
  5. TRAZODONE HCL [Concomitant]
     Indication: SLEEP DISORDER
     Dosage: 100 MG, UNK
     Dates: start: 20081010, end: 20090119
  6. TYLENOL [Concomitant]
     Indication: PAIN
  7. PROAIR HFA [Concomitant]
     Dosage: 8.5 G, UNK
     Dates: start: 20081027
  8. CYCLOBENAZPRINE [Concomitant]
     Dosage: 10 MG, UNK
     Dates: start: 20081111
  9. NORCO [Concomitant]
     Indication: PAIN
     Dosage: UNK
     Dates: start: 20080101
  10. CLINDAMYCIN [Concomitant]
     Dosage: 150 MG, UNK
     Dates: start: 20081002
  11. PULMICORT [Concomitant]
  12. NAPROXEN [Concomitant]
  13. YAZ [Suspect]
     Indication: PREMENSTRUAL SYNDROME
  14. BENADRYL [Concomitant]
     Indication: HYPERSENSITIVITY
  15. AMBIEN [Concomitant]
     Indication: SLEEP DISORDER
     Dosage: UNK
     Dates: start: 20080101
  16. ZOLPIDEM [Concomitant]
     Dosage: 10 MG, UNK
     Dates: start: 20081203, end: 20090102
  17. MULTI-VITAMIN [Concomitant]
     Indication: VITAMIN SUPPLEMENTATION
     Dosage: UNK
     Dates: start: 20030101
  18. METHOCARBAMOL [Concomitant]
     Indication: PAIN
     Dosage: UNK
     Dates: start: 20081120, end: 20090102
  19. TYLENOL [Concomitant]
     Indication: SLEEP DISORDER
     Dosage: UNK
     Dates: start: 20070101
  20. CHLORHEXIDINE GLUCONATE [Concomitant]
     Dosage: 473ML
     Dates: start: 20081002
  21. BUSPIRONE HCL [Concomitant]
     Dosage: 10 MG, UNK
     Dates: start: 20081111
  22. EXCEDRIN (MIGRAINE) [Concomitant]
  23. IBUPROFEN [Concomitant]
  24. YAZ [Suspect]
     Indication: CONTRACEPTION
     Dosage: UNK
     Dates: start: 20081001, end: 20090101
  25. OXYCODONE HCL AND ACETAMINOPHEN [Concomitant]
     Dosage: 5MG-325MG
     Dates: start: 20081002
  26. METHOCARBAMOL [Concomitant]
     Indication: INFLAMMATION
  27. ANTIBIOTICS [Concomitant]
  28. HYDROCODONE BITARTRATE AND ACETAMINOPHEN [Concomitant]
     Dosage: 7.5MG/750MG
     Dates: start: 20081006, end: 20081125

REACTIONS (2)
  - DEEP VEIN THROMBOSIS [None]
  - PULMONARY EMBOLISM [None]
